FAERS Safety Report 14240293 (Version 1)
Quarter: 2017Q4

REPORT INFORMATION
  Report Type: Spontaneous
  Country: US (occurrence: US)
  Receive Date: 20171129
  Receipt Date: 20171129
  Transmission Date: 20180321
  Serious: Yes (Other)
  Sender: FDA-Public Use
  Company Number: None

PATIENT
  Age: 17 Year
  Sex: Male
  Weight: 74.25 kg

DRUGS (1)
  1. DOXYCLICINE HYCLATE [Suspect]
     Active Substance: DOXYCYCLINE HYCLATE
     Indication: ACNE
     Route: 048
     Dates: start: 20170101, end: 20170906

REACTIONS (6)
  - Social avoidant behaviour [None]
  - Anxiety [None]
  - Serum serotonin decreased [None]
  - Depression [None]
  - Suicidal ideation [None]
  - Dysbacteriosis [None]

NARRATIVE: CASE EVENT DATE: 20170901
